FAERS Safety Report 11812788 (Version 10)
Quarter: 2018Q3

REPORT INFORMATION
  Report Type: Report from Study
  Country: BE (occurrence: BE)
  Receive Date: 20151209
  Receipt Date: 20180809
  Transmission Date: 20181020
  Serious: Yes (Hospitalization, Other)
  Sender: FDA-Public Use
  Company Number: BE-ROCHE-1674127

PATIENT
  Age: 73 Year
  Sex: Female

DRUGS (23)
  1. PACLITAXEL. [Suspect]
     Active Substance: PACLITAXEL
     Indication: OVARIAN CANCER
     Route: 042
     Dates: start: 20150512
  2. DEXAMETHASONE. [Concomitant]
     Active Substance: DEXAMETHASONE
     Indication: PREMEDICATION
     Route: 065
     Dates: start: 20150511, end: 20151016
  3. AUGMENTIN [Concomitant]
     Active Substance: AMOXICILLIN\CLAVULANATE POTASSIUM
     Route: 065
     Dates: start: 20150726, end: 20150727
  4. EMCONCOR [Concomitant]
     Active Substance: BISOPROLOL FUMARATE
     Route: 065
     Dates: start: 2010, end: 201603
  5. LORMETAZEPAM [Concomitant]
     Active Substance: LORMETAZEPAM
     Indication: INSOMNIA
     Route: 065
     Dates: start: 20150723, end: 20150802
  6. CARBOPLATIN. [Suspect]
     Active Substance: CARBOPLATIN
     Indication: OVARIAN CANCER
     Dosage: 5 AUC
     Route: 042
     Dates: start: 20150512
  7. L?THYROXINE [Concomitant]
     Active Substance: LEVOTHYROXINE
     Route: 065
     Dates: start: 20150128
  8. COVERAM [Concomitant]
     Active Substance: AMLODIPINE\PERINDOPRIL
     Route: 065
     Dates: start: 201411, end: 20150905
  9. ALOXI [Concomitant]
     Active Substance: PALONOSETRON HYDROCHLORIDE
     Indication: PREMEDICATION
     Route: 065
     Dates: start: 20150512, end: 20151016
  10. HARTMANN^S SOLUTION [Concomitant]
     Active Substance: CALCIUM CHLORIDE\POTASSIUM CHLORIDE\SODIUM CHLORIDE\SODIUM LACTATE
     Route: 065
     Dates: start: 20150728, end: 20150728
  11. ZANTAC [Concomitant]
     Active Substance: RANITIDINE HYDROCHLORIDE
     Indication: PREMEDICATION
     Route: 065
     Dates: start: 20150512, end: 20151016
  12. URFADYN [Concomitant]
     Active Substance: NIFURTOINOL
     Indication: URINARY TRACT INFECTION
     Route: 065
     Dates: start: 20150831, end: 20150910
  13. BEVACIZUMAB. [Suspect]
     Active Substance: BEVACIZUMAB
     Indication: OVARIAN CANCER
     Route: 042
     Dates: start: 20150512, end: 20150728
  14. STEOVIT D3 [Concomitant]
     Active Substance: CALCIUM CARBONATE\CHOLECALCIFEROL
     Indication: PROPHYLAXIS
  15. DAFALGAN [Concomitant]
     Active Substance: ACETAMINOPHEN
  16. ZYRTEC [Concomitant]
     Active Substance: CETIRIZINE HYDROCHLORIDE
     Indication: PREMEDICATION
     Route: 065
     Dates: start: 20150511, end: 20151015
  17. MEDROL [Concomitant]
     Active Substance: METHYLPREDNISOLONE
  18. PANTOMED (BELGIUM) [Concomitant]
     Route: 065
     Dates: start: 20150128
  19. ACTOSOLV [Concomitant]
     Dosage: 100000 UNITS PER DAY
     Route: 065
     Dates: start: 20150901, end: 20150901
  20. KAYEXALATE CALCIUM [Concomitant]
     Indication: HYPERKALAEMIA
     Route: 065
     Dates: start: 20150831, end: 20150903
  21. PACKED CELLS [Concomitant]
     Active Substance: CELLS, NOS
     Indication: ANAEMIA
     Route: 065
     Dates: start: 20150723, end: 20150723
  22. EMCONCOR [Concomitant]
     Active Substance: BISOPROLOL FUMARATE
     Route: 065
  23. IMODIUM [Concomitant]
     Active Substance: LOPERAMIDE HYDROCHLORIDE
     Route: 065
     Dates: start: 20150605, end: 20150607

REACTIONS (22)
  - Vertigo [Not Recovered/Not Resolved]
  - Neutropenia [Recovered/Resolved]
  - Post procedural fistula [Recovered/Resolved]
  - Weight decreased [Recovered/Resolved]
  - Cardiac failure [Not Recovered/Not Resolved]
  - Malaise [Recovered/Resolved]
  - Atrial fibrillation [Recovered/Resolved]
  - Oral candidiasis [Recovered/Resolved]
  - Fatigue [Recovered/Resolved]
  - Leukocytosis [Not Recovered/Not Resolved]
  - Dyspnoea [Recovered/Resolved]
  - Decreased appetite [Recovered/Resolved]
  - Vomiting [Recovered/Resolved]
  - Constipation [Recovered/Resolved]
  - Impaired healing [Recovered/Resolved]
  - Diarrhoea [Recovered/Resolved]
  - Gout [Not Recovered/Not Resolved]
  - Cystitis [Recovered/Resolved]
  - General physical health deterioration [Recovered/Resolved]
  - Hypertension [Not Recovered/Not Resolved]
  - Diarrhoea [Unknown]
  - Bronchitis [Recovered/Resolved]

NARRATIVE: CASE EVENT DATE: 20150605
